FAERS Safety Report 5730444-7 (Version None)
Quarter: 2008Q2

REPORT INFORMATION
  Report Type: 
  Country: None (occurrence: None)
  Receive Date: 20080507
  Receipt Date: 20080423
  Transmission Date: 20081010
  Serious: Yes (Hospitalization, Other)
  Sender: FDA-Public Use
  Company Number: US-ELI_LILLY_AND_COMPANY-US200804005879

PATIENT
  Sex: Female

DRUGS (3)
  1. FORTEO [Suspect]
     Dates: start: 20030801, end: 20050801
  2. HUMALOG [Concomitant]
     Dosage: UNK, UNK
  3. PLAVIX [Concomitant]

REACTIONS (4)
  - BONE DENSITY DECREASED [None]
  - CATARACT [None]
  - VASCULAR GRAFT [None]
  - WALKING AID USER [None]
